FAERS Safety Report 25833494 (Version 4)
Quarter: 2025Q4

REPORT INFORMATION
  Report Type: Report from Study
  Country: BR (occurrence: BR)
  Receive Date: 20250922
  Receipt Date: 20251231
  Transmission Date: 20260118
  Serious: Yes (Life-Threatening, Hospitalization, Other)
  Sender: NOVARTIS
  Company Number: BR-002147023-NVSC2025BR146426

PATIENT
  Sex: Female
  Weight: 110 kg

DRUGS (4)
  1. FEMARA [Suspect]
     Active Substance: LETROZOLE
     Indication: Breast cancer
     Dosage: UNK
     Route: 065
     Dates: start: 2013, end: 2021
  2. KISQALI [Suspect]
     Active Substance: RIBOCICLIB SUCCINATE
     Indication: Breast cancer metastatic
     Dosage: 200 MG (63 TABLET S REV) (2 TABLETS FOR 21 DAYS, STOP FOR 7, THEN START AGAIN)
     Route: 065
     Dates: start: 2023
  3. KISQALI [Suspect]
     Active Substance: RIBOCICLIB SUCCINATE
     Dosage: UNK
     Route: 065
  4. FULVESTRANT [Suspect]
     Active Substance: FULVESTRANT
     Indication: Product used for unknown indication
     Dosage: UNK
     Route: 065

REACTIONS (15)
  - Anaemia [Not Recovered/Not Resolved]
  - Breast cancer recurrent [Not Recovered/Not Resolved]
  - Femur fracture [Unknown]
  - Urinary tract infection [Recovered/Resolved]
  - Metastases to bone [Not Recovered/Not Resolved]
  - Malaise [Recovered/Resolved]
  - Cardiac arrest [Unknown]
  - Pulmonary oedema [Unknown]
  - Pulmonary embolism [Unknown]
  - Musculoskeletal chest pain [Unknown]
  - Osteopenia [Unknown]
  - Osteoarthritis [Unknown]
  - Pain [Recovered/Resolved]
  - Tumour marker abnormal [Unknown]
  - Memory impairment [Unknown]

NARRATIVE: CASE EVENT DATE: 20230101
